FAERS Safety Report 25728345 (Version 1)
Quarter: 2025Q3

REPORT INFORMATION
  Report Type: Spontaneous
  Country: US (occurrence: US)
  Receive Date: 20250826
  Receipt Date: 20250826
  Transmission Date: 20251021
  Serious: No
  Sender: BIOGEN
  Company Number: US-BIOGEN-2025BI01321599

PATIENT
  Sex: Male

DRUGS (2)
  1. PLEGRIDY [Suspect]
     Active Substance: PEGINTERFERON BETA-1A
     Indication: Multiple sclerosis
     Route: 050
     Dates: start: 20170522
  2. PLEGRIDY [Suspect]
     Active Substance: PEGINTERFERON BETA-1A

REACTIONS (2)
  - Multiple sclerosis [Unknown]
  - Balance disorder [Recovered/Resolved]

NARRATIVE: CASE EVENT DATE: 20240101
